FAERS Safety Report 6882525-2 (Version None)
Quarter: 2010Q3

REPORT INFORMATION
  Report Type: 
  Country: None (occurrence: None)
  Receive Date: 20100729
  Receipt Date: 20100722
  Transmission Date: 20110219
  Serious: Yes (Other)
  Sender: FDA-Public Use
  Company Number: GB-BRISTOL-MYERS SQUIBB COMPANY-15206519

PATIENT
  Age: 61 Year
  Sex: Male

DRUGS (5)
  1. APROVEL [Suspect]
  2. VITAMIN B [Concomitant]
  3. METOPROLOL TARTRATE [Concomitant]
  4. DITROPAN [Concomitant]
  5. BECLOMETHASONE DIPROPIONATE [Concomitant]
     Route: 045

REACTIONS (2)
  - BLOOD PRESSURE FLUCTUATION [None]
  - HALLUCINATION [None]
